FAERS Safety Report 6725601-7 (Version None)
Quarter: 2010Q2

REPORT INFORMATION
  Report Type: 
  Country: None (occurrence: None)
  Receive Date: 20100514
  Receipt Date: 20100420
  Transmission Date: 20101027
  Serious: Yes (Disabling)
  Sender: FDA-Public Use
  Company Number: FR-ROCHE-696509

PATIENT
  Sex: Female

DRUGS (5)
  1. HERCEPTIN [Suspect]
     Indication: BREAST CANCER
     Dosage: SOLUTION FOR INFUSION; DOSE; EVERY CYCLE
     Route: 041
     Dates: start: 20070701
  2. TAXOTERE [Suspect]
     Indication: BREAST CANCER
     Dosage: SOLUTION FOR INFUSION; DOSE; EVERY CYCLE
     Route: 041
     Dates: start: 20070701
  3. CARBOPLATIN [Suspect]
     Indication: BREAST CANCER
     Dosage: SOLUTION FOR INFUSION; DOSE; EVERY CYCLE
     Route: 041
     Dates: start: 20070701
  4. FEMARA [Concomitant]
     Indication: BREAST CANCER
     Dosage: DRUG NAME REPORTED AS FEMARA 2.5 MG
     Route: 048
  5. PHYSIOTENS [Concomitant]
     Route: 048

REACTIONS (1)
  - ALOPECIA [None]
